FAERS Safety Report 4892271-2 (Version None)
Quarter: 2006Q1

REPORT INFORMATION
  Report Type: 
  Country: None (occurrence: None)
  Receive Date: 20060126
  Receipt Date: 20050411
  Transmission Date: 20060701
  Serious: Yes (Other)
  Sender: FDA-Public Use
  Company Number: 2005UW05803

PATIENT
  Sex: Female
  Weight: 69 kg

DRUGS (16)
  1. FASLODEX [Suspect]
     Indication: BREAST CANCER
     Route: 030
     Dates: start: 20050328
  2. FASLODEX [Suspect]
     Route: 030
     Dates: start: 20050314
  3. FASLODEX [Suspect]
     Route: 030
     Dates: start: 20050304
  4. FOSAMAX [Concomitant]
     Indication: BONE DENSITY DECREASED
     Route: 048
     Dates: start: 20040329
  5. FOSAMAX [Concomitant]
     Route: 048
     Dates: start: 20040329
  6. SYNTHROID [Concomitant]
     Indication: HORMONE REPLACEMENT THERAPY
     Route: 048
     Dates: start: 19981002
  7. EFFEXOR [Concomitant]
     Indication: HOT FLUSH
     Route: 048
     Dates: start: 20030625
  8. ACTIFED [Concomitant]
     Indication: NASAL CONGESTION
     Route: 048
     Dates: start: 20031112
  9. ACTIFED [Concomitant]
     Indication: ANTIALLERGIC THERAPY
     Route: 048
     Dates: start: 20031112
  10. PSEUDOEPHEDRINE HCL [Concomitant]
     Indication: NASAL CONGESTION
     Route: 048
     Dates: start: 20031112
  11. PSEUDOEPHEDRINE HCL [Concomitant]
     Indication: ANTIALLERGIC THERAPY
     Route: 048
     Dates: start: 20031112
  12. TRIPROLIDINE [Concomitant]
     Indication: NASAL CONGESTION
     Route: 048
     Dates: start: 20031112
  13. TRIPROLIDINE [Concomitant]
     Indication: ANTIALLERGIC THERAPY
     Route: 048
     Dates: start: 20031112
  14. MICARDIS [Concomitant]
     Indication: HYPERTENSION
     Route: 048
     Dates: start: 20041117
  15. MOBIC [Concomitant]
     Indication: TENDONITIS
     Route: 048
     Dates: start: 20050223
  16. MOBIC [Concomitant]
     Route: 048
     Dates: start: 20050223

REACTIONS (1)
  - SWOLLEN TONGUE [None]
